FAERS Safety Report 4851825-X (Version None)
Quarter: 2005Q4

REPORT INFORMATION
  Report Type: 
  Country: None (occurrence: None)
  Receive Date: 20051209
  Receipt Date: 20051125
  Transmission Date: 20060501
  Serious: No
  Sender: FDA-Public Use
  Company Number: 12305

PATIENT
  Sex: Male

DRUGS (10)
  1. CYTARABINE [Suspect]
     Indication: ACUTE MYELOID LEUKAEMIA
     Dosage: 200 MG/M2 DAILY IV
     Route: 042
     Dates: start: 20050909, end: 20050916
  2. ALLOPURINOL [Concomitant]
  3. ETOPOSIDE [Concomitant]
  4. DAUNORUBICIN [Concomitant]
  5. ITRACONAZOLE [Concomitant]
  6. FEXOFENADINE HCL [Concomitant]
  7. CYCLIZINE [Concomitant]
  8. SLOW-K [Concomitant]
  9. FUROSEMIDE [Concomitant]
  10. TAZOCIN [Concomitant]

REACTIONS (1)
  - RASH ERYTHEMATOUS [None]
